FAERS Safety Report 7641447-X (Version None)
Quarter: 2011Q3

REPORT INFORMATION
  Report Type: 
  Country: None (occurrence: None)
  Receive Date: 20110728
  Receipt Date: 20110718
  Transmission Date: 20111222
  Serious: Yes (Hospitalization)
  Sender: FDA-Public Use
  Company Number: US-AMGEN-USASP2011008907

PATIENT
  Age: 54 Year
  Sex: Female
  Weight: 81.6 kg

DRUGS (2)
  1. ENBREL [Suspect]
     Indication: RHEUMATOID ARTHRITIS
     Dosage: 50 MG, QWK
     Dates: start: 20071228
  2. ENBREL [Suspect]
     Dosage: 50 MG, QWK
     Dates: start: 20070801

REACTIONS (4)
  - FALL [None]
  - JOINT DISLOCATION [None]
  - ROTATOR CUFF SYNDROME [None]
  - MUSCLE RUPTURE [None]
